FAERS Safety Report 20129634 (Version 1)
Quarter: 2021Q4

REPORT INFORMATION
  Report Type: Other
  Country: IT (occurrence: IT)
  Receive Date: 20211130
  Receipt Date: 20211130
  Transmission Date: 20220303
  Serious: Yes (Hospitalization)
  Sender: FDA-Public Use
  Company Number: None

PATIENT
  Age: 48 Year
  Sex: Male

DRUGS (7)
  1. CLONAZEPAM [Suspect]
     Active Substance: CLONAZEPAM
     Indication: Drug abuse
     Route: 048
     Dates: start: 20210916, end: 20210916
  2. METHADONE HYDROCHLORIDE [Suspect]
     Active Substance: METHADONE HYDROCHLORIDE
     Indication: Drug detoxification
     Route: 048
     Dates: start: 20210914
  3. CLOZAPINE [Concomitant]
     Active Substance: CLOZAPINE
     Indication: Borderline personality disorder
     Route: 048
     Dates: start: 20210914
  4. LYRICA [Concomitant]
     Active Substance: PREGABALIN
     Indication: Borderline personality disorder
     Route: 048
     Dates: start: 20210914
  5. ABILIFY [Concomitant]
     Active Substance: ARIPIPRAZOLE
     Indication: Borderline personality disorder
     Dosage: 15 MG
     Route: 048
     Dates: start: 20210914
  6. QUETIAPINE FUMARATE [Concomitant]
     Active Substance: QUETIAPINE FUMARATE
     Indication: Borderline personality disorder
     Route: 048
     Dates: start: 20210914
  7. TIVICAY [Concomitant]
     Active Substance: DOLUTEGRAVIR SODIUM
     Indication: HIV infection
     Route: 048

REACTIONS (4)
  - Sopor [Recovering/Resolving]
  - Disorganised speech [Recovering/Resolving]
  - Loss of consciousness [Recovering/Resolving]
  - Drug abuse [Recovering/Resolving]

NARRATIVE: CASE EVENT DATE: 20210916
